FAERS Safety Report 19294990 (Version 2)
Quarter: 2021Q2

REPORT INFORMATION
  Report Type: Spontaneous
  Country: GB (occurrence: GB)
  Receive Date: 20210524
  Receipt Date: 20210528
  Transmission Date: 20210717
  Serious: Yes (Life-Threatening, Hospitalization, Other)
  Sender: FDA-Public Use
  Company Number: GB-PFIZER INC-044-0902-940004

PATIENT
  Age: 28 Year
  Sex: Female

DRUGS (3)
  1. DO?DO [CAFFEINE/EPHEDRINE HYDROCHLORIDE/THEOPHYLLINE] [Interacting]
     Active Substance: CAFFEINE\EPHEDRINE HYDROCHLORIDE\THEOPHYLLINE
     Indication: COUGH
  2. DO?DO [CAFFEINE/EPHEDRINE HYDROCHLORIDE/THEOPHYLLINE] [Interacting]
     Active Substance: CAFFEINE\EPHEDRINE HYDROCHLORIDE\THEOPHYLLINE
     Indication: WHEEZING
     Dosage: 30 MG OF CAFFEINE, 18.31 MG OF EPHEDRINE HYDROCHLORIDE AND 100 MG OF THEOPHYLLINE, 1X/DAY; 8 H EARLI
     Route: 048
     Dates: start: 19930929, end: 19930929
  3. NARDIL [Suspect]
     Active Substance: PHENELZINE SULFATE
     Indication: DEPRESSION
     Dosage: 60 MG, 1X/DAY; FOR 4 WEEKS
     Route: 048
     Dates: end: 19930928

REACTIONS (12)
  - Rhabdomyolysis [Recovered/Resolved]
  - Hyperpyrexia [Recovered/Resolved]
  - Acute respiratory distress syndrome [Recovered/Resolved]
  - Neuromyopathy [Unknown]
  - Hypotension [Recovered/Resolved]
  - Pyrexia [Recovered/Resolved]
  - Encephalopathy [Recovered/Resolved]
  - Pneumonia staphylococcal [Recovered/Resolved]
  - Hyperthermia [Unknown]
  - Tachycardia [Recovered/Resolved]
  - Drug interaction [Recovered/Resolved]
  - Toxicity to various agents [Recovered/Resolved]

NARRATIVE: CASE EVENT DATE: 19930930
